FAERS Safety Report 5633570-6 (Version None)
Quarter: 2008Q1

REPORT INFORMATION
  Report Type: 
  Country: None (occurrence: None)
  Receive Date: 20080221
  Receipt Date: 20080212
  Transmission Date: 20080703
  Serious: Yes (Other)
  Sender: FDA-Public Use
  Company Number: US-PFIZER INC-2008014443

PATIENT
  Sex: Female
  Weight: 52.272 kg

DRUGS (5)
  1. AMLODIPINE [Suspect]
     Indication: HYPERTENSION
  2. BENAZEPRIL HYDROCHLORIDE [Suspect]
     Indication: HYPERTENSION
  3. METFORMIN HCL [Suspect]
     Indication: GLUCOSE TOLERANCE IMPAIRED
  4. CLONIDINE [Suspect]
     Indication: HYPERTENSION
  5. VYTORIN [Concomitant]

REACTIONS (4)
  - BLOOD PRESSURE SYSTOLIC INCREASED [None]
  - DIZZINESS [None]
  - GLUCOSE TOLERANCE IMPAIRED [None]
  - HAEMOGLOBIN DECREASED [None]
